FAERS Safety Report 5930268-1 (Version None)
Quarter: 2008Q4

REPORT INFORMATION
  Report Type: 
  Country: None (occurrence: None)
  Receive Date: 20081009
  Receipt Date: 20080528
  Transmission Date: 20090506
  Serious: Yes (Death, Other)
  Sender: FDA-Public Use
  Company Number: PHEH2008US03385

PATIENT
  Age: 67 Year
  Sex: Male
  Weight: 68 kg

DRUGS (8)
  1. ZOMETA [Suspect]
     Indication: METASTASES TO BONE
     Dosage: 4 MG EVERY 4 WEEKS, INTRAVENOUS
     Route: 042
     Dates: start: 20070314, end: 20080306
  2. ETOPOSIDE [Concomitant]
  3. CISPLATIN [Concomitant]
  4. TAXOL [Concomitant]
  5. CARBOPLATIN [Concomitant]
  6. MAGNESIUM (MAGNESIUM) [Concomitant]
  7. ARANESP [Concomitant]
  8. NEULASTA [Concomitant]

REACTIONS (11)
  - BONE DISORDER [None]
  - CULTURE POSITIVE [None]
  - DISEASE PROGRESSION [None]
  - GINGIVAL ERYTHEMA [None]
  - GINGIVAL INFECTION [None]
  - GINGIVAL PAIN [None]
  - MASTICATION DISORDER [None]
  - OSTEOMYELITIS [None]
  - OSTEONECROSIS [None]
  - PERIODONTITIS [None]
  - TOOTHACHE [None]
